FAERS Safety Report 11192425 (Version 1)
Quarter: 2015Q2

REPORT INFORMATION
  Report Type: Spontaneous
  Country: CA (occurrence: CA)
  Receive Date: 20150616
  Receipt Date: 20150616
  Transmission Date: 20150821
  Serious: Yes (Other)
  Sender: FDA-Public Use
  Company Number: CA-PFIZER INC-2015189461

PATIENT
  Age: 61 Year
  Sex: Female

DRUGS (4)
  1. NAPROXENE /00256201/ [Concomitant]
     Active Substance: NAPROXEN
     Indication: PAIN
     Dosage: 500 MG, 2X/DAY
  2. DOCUSATE SODIUM. [Concomitant]
     Active Substance: DOCUSATE SODIUM
     Indication: CONSTIPATION
     Dosage: 200 G, 1X/DAY
  3. APO TRAMADOL [Concomitant]
     Indication: PAIN
     Dosage: 50 MG, EVERY 4 HOURS
     Dates: start: 20150529
  4. FRAGMIN [Suspect]
     Active Substance: DALTEPARIN SODIUM
     Indication: POSTOPERATIVE CARE
     Dosage: 5000 IU, DAILY
     Route: 058
     Dates: start: 20150527, end: 20150610

REACTIONS (1)
  - Tachycardia [Recovered/Resolved]

NARRATIVE: CASE EVENT DATE: 20150527
